FAERS Safety Report 10030874 (Version 2)
Quarter: 2014Q1

REPORT INFORMATION
  Report Type: Spontaneous
  Country: US (occurrence: US)
  Receive Date: 20140323
  Receipt Date: 20140323
  Transmission Date: 20141002
  Serious: No
  Sender: FDA-Public Use
  Company Number: US-ALLERGAN-1316320US

PATIENT
  Age: 68 Year
  Sex: Female
  Weight: 170 kg

DRUGS (1)
  1. LATISSE 0.03% [Suspect]
     Indication: GROWTH OF EYELASHES
     Dosage: 1 GTT, EACH EYE
     Route: 061
     Dates: start: 20131013, end: 20131022

REACTIONS (1)
  - Madarosis [Recovered/Resolved]
